FAERS Safety Report 8404127 (Version 6)
Quarter: 2013Q2

REPORT INFORMATION
  Report Type: Spontaneous
  Country: US (occurrence: None)
  Receive Date: 20111227
  Receipt Date: 20120426
  Transmission Date: 20140414
  Serious: Yes (Other)
  Sender: FDA-Public Use
  Company Number: PHHY2010US90125

PATIENT
  Age: 56 Year
  Sex: Male
  Weight: 81.6 kg

DRUGS (10)
  1. GILENYA [Suspect]
     Indication: MULTIPLE SCLEROSIS
     Dosage: 0.5 MG, DAILY, ORAL
     Route: 048
     Dates: start: 20101229
  2. GILENYA [Suspect]
     Indication: RELAPSING-REMITTING MULTIPLE SCLEROSIS
     Dosage: 0.5 MG, DAILY, ORAL
     Route: 048
     Dates: start: 20101229
  3. ADDERALL [Concomitant]
  4. NUVIGIL [Concomitant]
  5. LUNESTA [Concomitant]
  6. BACLOFEN [Concomitant]
  7. CYCLOBENZAPRINE [Concomitant]
  8. VESICARE [Concomitant]
  9. AMLODIPINE [Concomitant]
  10. ATACAND [Concomitant]

REACTIONS (2)
  - HEART RATE DECREASED [None]
  - FATIGUE [None]
